FAERS Safety Report 14860121 (Version 1)
Quarter: 2018Q2

REPORT INFORMATION
  Report Type: Spontaneous
  Country: US (occurrence: US)
  Receive Date: 20180422
  Receipt Date: 20180422
  Transmission Date: 20180711
  Serious: Yes (Disabling)
  Sender: FDA-Public Use
  Company Number: None

PATIENT
  Age: 51 Year
  Sex: Female
  Weight: 80.1 kg

DRUGS (1)
  1. LUPRON DEPOT [Suspect]
     Active Substance: LEUPROLIDE ACETATE
     Dosage: ?          QUANTITY:3.75 MG;OTHER FREQUENCY:MONTHLY;?
     Route: 058
     Dates: start: 20130902, end: 20131003

REACTIONS (12)
  - Pancreatitis [None]
  - Condition aggravated [None]
  - Fibromyalgia [None]
  - Bursitis [None]
  - Migraine [None]
  - Major depression [None]
  - Hepatic enzyme abnormal [None]
  - Gastrooesophageal reflux disease [None]
  - Generalised anxiety disorder [None]
  - Irritable bowel syndrome [None]
  - Panic disorder [None]
  - Loss of employment [None]

NARRATIVE: CASE EVENT DATE: 20131003
